FAERS Safety Report 9516345 (Version 2)
Quarter: 2014Q1

REPORT INFORMATION
  Report Type: Spontaneous
  Country: US (occurrence: None)
  Receive Date: 20130305
  Receipt Date: 20140306
  Transmission Date: 20141002
  Serious: Yes (Life-Threatening, Hospitalization, Other)
  Sender: FDA-Public Use
  Company Number: 163-21880-12113356

PATIENT
  Age: 86 Year
  Sex: Female

DRUGS (10)
  1. REVLIMID [Suspect]
     Indication: MYELODYSPLASTIC SYNDROME
     Dosage: 5MG, 28 IN 28D, PO
     Route: 048
     Dates: start: 20110315
  2. VICODIN [Concomitant]
  3. ZESTRIL [Concomitant]
  4. SYNTHROID [Concomitant]
  5. ALDOMER [Concomitant]
  6. CRESTOR [Concomitant]
  7. DIGOXIN [Concomitant]
  8. INSULIN [Concomitant]
  9. LASIX [Concomitant]
  10. MEGACE [Concomitant]

REACTIONS (7)
  - Cerebrovascular accident [None]
  - Diarrhoea [None]
  - Constipation [None]
  - Fatigue [None]
  - Local swelling [None]
  - Cerebral infarction [None]
  - Anaemia [None]
